FAERS Safety Report 17345751 (Version 1)
Quarter: 2020Q1

REPORT INFORMATION
  Report Type: Report from Study
  Country: AU (occurrence: AU)
  Receive Date: 20200129
  Receipt Date: 20200129
  Transmission Date: 20200409
  Serious: Yes (Hospitalization)
  Sender: FDA-Public Use
  Company Number: AU-NOVOPROD-709050

PATIENT
  Age: 73 Year
  Sex: Male
  Weight: 46 kg

DRUGS (1)
  1. NOVOMIX 30 [Suspect]
     Active Substance: INSULIN ASPART
     Indication: PRODUCT USED FOR UNKNOWN INDICATION
     Dosage: 16 IU, QD (12 UNITS BREAK/ 4 UNITS AT DINNER)
     Route: 065
     Dates: start: 20191217

REACTIONS (3)
  - Hypoglycaemia [Recovered/Resolved]
  - Weight decreased [Unknown]
  - Hyperglycaemia [Unknown]

NARRATIVE: CASE EVENT DATE: 201912
